FAERS Safety Report 9959363 (Version 1)
Quarter: 2014Q1

REPORT INFORMATION
  Report Type: Report from Study
  Country: US (occurrence: US)
  Receive Date: 20140305
  Receipt Date: 20140305
  Transmission Date: 20141002
  Serious: No
  Sender: FDA-Public Use
  Company Number: US-ABBVIE-13P-163-1106732-00

PATIENT
  Age: 61 Year
  Sex: Female

DRUGS (6)
  1. HUMIRA [Suspect]
     Indication: CROHN^S DISEASE
     Route: 058
     Dates: start: 201304
  2. METOPROLOL [Concomitant]
     Indication: CARDIAC DISORDER
  3. FUROSEMIDE [Concomitant]
     Indication: CARDIAC FAILURE CONGESTIVE
     Dosage: 40 MG DAILY
  4. ASA [Concomitant]
     Indication: CARDIAC DISORDER
     Dosage: 81 MG DAILY
  5. QUINAPRIL [Concomitant]
     Indication: BLOOD PRESSURE
  6. AMLODIPINE [Concomitant]
     Indication: BLOOD PRESSURE
     Dosage: 5 MG DAILY

REACTIONS (2)
  - Gastrointestinal ulcer [Not Recovered/Not Resolved]
  - Drug ineffective [Not Recovered/Not Resolved]
